FAERS Safety Report 25444126 (Version 8)
Quarter: 2025Q4

REPORT INFORMATION
  Report Type: Report from Study
  Country: US (occurrence: US)
  Receive Date: 20250617
  Receipt Date: 20251017
  Transmission Date: 20260118
  Serious: Yes (Hospitalization, Other)
  Sender: ACADIA PHARMACEUTICALS
  Company Number: US-ACADIA PHARMACEUTICALS INC.-ACA-2025-TRF-007098

PATIENT
  Age: 29 Year
  Sex: Female
  Weight: 34.836 kg

DRUGS (78)
  1. DAYBUE [Suspect]
     Active Substance: TROFINETIDE
     Indication: Rett syndrome
     Dosage: 50 MILLILITER, BID
     Route: 048
     Dates: start: 20230823, end: 20250611
  2. DAYBUE [Suspect]
     Active Substance: TROFINETIDE
     Dosage: 50 MILLILITER, BID
     Route: 048
     Dates: start: 20250630
  3. DAYBUE [Suspect]
     Active Substance: TROFINETIDE
     Dosage: 50 MILLILITER, BID
     Dates: end: 20250911
  4. DAYBUE [Suspect]
     Active Substance: TROFINETIDE
     Dosage: 50 MILLILITER, BID
     Dates: start: 20250918
  5. OMEPRAZOLE [Concomitant]
     Active Substance: OMEPRAZOLE
     Dosage: 20 MILLIGRAM, QD
  6. PREGABALIN [Concomitant]
     Active Substance: PREGABALIN
     Dosage: UNK, BID 150 MG IN AM AND 175 MG AT BEDTIME)
  7. GUAIFENESIN [Concomitant]
     Active Substance: GUAIFENESIN
     Dosage: 40 MILLIGRAM, TID 1:30 PM AND 6:45 PM AND 12:00 AM)
  8. CITRIC ACID MONOHYDRATE\SODIUM CITRATE [Concomitant]
     Active Substance: CITRIC ACID MONOHYDRATE\SODIUM CITRATE
     Dosage: 40 MILLILITER, TID (AT 9:00 AM AND 1:30 PM AND 6:45 PM)
  9. LEUCOVORIN CALCIUM [Concomitant]
     Active Substance: LEUCOVORIN CALCIUM
     Dosage: 35 MILLIGRAM, BID
  10. BUDESONIDE [Concomitant]
     Active Substance: BUDESONIDE
     Dosage: UNK, BID VIA NEBULIZER
  11. IPRATROPIUM [Concomitant]
     Active Substance: IPRATROPIUM
     Dosage: UNK UNK, (0.5 MG/2,5 ML)BID UPDRAFT VIA NEBULIZER (0.5MG/2.5ML)
  12. IPRATROPIUM [Concomitant]
     Active Substance: IPRATROPIUM
     Dosage: UPDRAFTE AT 6:45 PM PRN
  13. VITAMINS NOS [Concomitant]
     Active Substance: VITAMINS
     Dosage: UNK UNK,  ONE QD
     Route: 048
  14. COENZYME Q10 [Concomitant]
     Active Substance: DIETARY SUPPLEMENT\UBIDECARENONE
     Dosage: UNK, QD (FORM B6 ON POD IN AM)
  15. VITAMIN D2 [Concomitant]
     Active Substance: ERGOCALCIFEROL
     Dosage: UNK WEEKLY
  16. ACETYLCARNITINE [Concomitant]
     Active Substance: ACETYLCARNITINE
     Dosage: 2 DOSAGE FORM, QD ( 1500 MG AT 9:00 AM)
  17. PERFOROMIST [Concomitant]
     Active Substance: FORMOTEROL FUMARATE DIHYDRATE
     Indication: Respiratory distress
     Dosage: UNK, BID  VIS NEBULIAZER (20MCG/2ML)
  18. PERFOROMIST [Concomitant]
     Active Substance: FORMOTEROL FUMARATE DIHYDRATE
     Dosage: UNK PRN (UPDRAFTE AT 6:45 PM)
  19. KEPPRA [Concomitant]
     Active Substance: LEVETIRACETAM
     Dosage: UNK, BID (125MG GIVE ONE AT 9:00 AM AND 250MG AT 9:00 PM)
  20. OMEGA 3 6 9 [OMEGA 9 FATTY ACIDS;OMEGA-3 FATTY ACIDS;OMEGA-6 FATTY ACI [Concomitant]
     Dosage: UNK UNK, BID (3 OTC ON 9:00 AM AND 6:45 PM)
  21. MAGNESIUM OXIDE [Concomitant]
     Active Substance: MAGNESIUM OXIDE
     Dosage: UNK UNK, BID (9:00 AM AND 6:45 PM)
  22. DIFLUCAN [Concomitant]
     Active Substance: FLUCONAZOLE
     Dosage: UNK UNK, BID (09:00 AND 6:45 PM)
  23. SIMETHICONE (DIMETHICONE) [Concomitant]
     Active Substance: DIMETHICONE
     Dosage: 240-250 MG ONE DAILY AND UP TO QID
  24. DIGESTIVE ENZYME [AMYLASE;LIPASE;PROTEASE NOS] [Concomitant]
     Dosage: UNK, TID OTC (AT 9 AM AND 1:30 PM AND 6:45 PM)
  25. BIOTIN [Concomitant]
     Active Substance: BIOTIN
     Dosage: UNK, QD
  26. ALLEGRA [Concomitant]
     Active Substance: FEXOFENADINE HYDROCHLORIDE
     Dosage: UNK UNK, QD (MCG TABLET ONE PO DAILY)
     Route: 048
  27. BIFIDOBACTERIUM ANIMALIS LACTIS [Concomitant]
     Active Substance: BIFIDOBACTERIUM ANIMALIS LACTIS
     Dosage: UNK (GB ONE TO TWO DAILY)
  28. DEPO-PROVERA [Concomitant]
     Active Substance: MEDROXYPROGESTERONE ACETATE
     Dosage: UNK (EVERY 10 WEEKS ) (USE EMLA FIRST
  29. KETOCONAZOLE [Concomitant]
     Active Substance: KETOCONAZOLE
     Indication: Rash
     Dosage: UNK UNK, (PRN WASH HEAD OR HAIR AND APPLY TOPICAL MEDICATION)
     Route: 061
  30. KETOCONAZOLE [Concomitant]
     Active Substance: KETOCONAZOLE
     Dosage: UNK APPLY TID UNTIL RASH IS RESOLVED
  31. CICLOPIROX [Concomitant]
     Active Substance: CICLOPIROX
     Dosage: UNK (TWICE A WEEK)
     Route: 061
  32. TYLENOL [Concomitant]
     Active Substance: ACETAMINOPHEN
     Dosage: 500MG ONE VIA PEG ONE HOUR BEFORE GAMMA INFUSION AND THE NEXT DAY
     Route: 050
  33. GAMMAGARD [Concomitant]
     Active Substance: HUMAN IMMUNOGLOBULIN G
     Dosage: UNK (3 GRAMS/30ML 3 SITES WITH PUMP WEEKLY)
  34. GENTAMICIN [Concomitant]
     Active Substance: GENTAMICIN
     Dosage: UNK  QD (15MG /30 ML)
  35. SENNA LEAF [Concomitant]
     Active Substance: SENNA LEAF
     Indication: Constipation
     Dosage: 2 DOSAGE FORM
  36. SENNA LEAF [Concomitant]
     Active Substance: SENNA LEAF
     Indication: Faecaloma
  37. BISACODYL [Concomitant]
     Active Substance: BISACODYL
     Dosage: UNK, QD
     Route: 054
  38. CIPRODEX [Concomitant]
     Active Substance: CIPROFLOXACIN HYDROCHLORIDE\DEXAMETHASONE
     Dosage: 2 DROP BID (IN EACH 9:00 AM AND 9:00 PM)
  39. XOPENEX [Concomitant]
     Active Substance: LEVALBUTEROL HYDROCHLORIDE
     Dosage: UNK (1:30 PM AND 5:30 PM AND 9:00 PM AND 12:00 AM)
  40. PULMICORT TURBUHALER [Concomitant]
     Active Substance: BUDESONIDE
     Dosage: UNK UNK, QOD 10 MG (1:30 PM AND 5:30 PM AND 9:00 PM AND 12:00 AM)
  41. PULMICORT TURBUHALER [Concomitant]
     Active Substance: BUDESONIDE
     Dosage: 1.0 MG UPDRAFTE AT 6:45 PM PRN
  42. SODIUM PHOSPHATE [Concomitant]
     Active Substance: SODIUM PHOSPHATE
     Dosage: UNK
  43. CLINDAMYCIN [Concomitant]
     Active Substance: CLINDAMYCIN
     Dosage: UNK
  44. TOLCYLEN [Concomitant]
     Active Substance: TOLNAFTATE
     Indication: Antifungal treatment
     Dosage: UNK UNK, QD
     Route: 061
  45. XOPENEX [Concomitant]
     Active Substance: LEVALBUTEROL HYDROCHLORIDE
     Indication: Hypoxia
     Dosage: UNK, PRN (1.25MG/3ML UPDRAFT Q 3-4 HRS)
  46. PEPCID [Concomitant]
     Active Substance: FAMOTIDINE
     Dosage: UNK, BID (40MG/5ML SUSPENSION GIVE 2.5ML BID ONE HOUR BEFORE MEALS UP TO BID)
  47. SPIRONOLACTONE [Concomitant]
     Active Substance: SPIRONOLACTONE
     Dosage: UNK UNK,  (GIVE HALF TABLET OR 12.5MG MWF AT 6:45 PM)
  48. APTIOM [Concomitant]
     Active Substance: ESLICARBAZEPINE ACETATE
     Dosage: UNK, QD (200MG GIVE 3 TABLETS OR 600 MG AT 9:00 PM)
  49. QUETIAPINE [Concomitant]
     Active Substance: QUETIAPINE
     Dosage: UNK (25MG GIVE AT 9:00 PM)
  50. EPIPEN [EPINEPHRINE HYDROCHLORIDE] [Concomitant]
     Dosage: UNK AS DIRECTED
  51. KLONOPIN [Concomitant]
     Active Substance: CLONAZEPAM
     Indication: Seizure
     Dosage: UNK, BID (GIVE 1/4 TO 1 TABLET)
  52. KLONOPIN [Concomitant]
     Active Substance: CLONAZEPAM
     Indication: Agitation
  53. CLONIDINE [Concomitant]
     Active Substance: CLONIDINE
     Indication: Blood pressure systolic
     Dosage: 1 DOSAGE FORM
  54. CLONIDINE [Concomitant]
     Active Substance: CLONIDINE
     Indication: Autonomic nervous system imbalance
  55. DIPHENHYDRAMINE [Concomitant]
     Active Substance: DIPHENHYDRAMINE
     Indication: Hypersensitivity
     Dosage: UNK, Q 6 HRS
  56. ACETYLCYSTEINE [Concomitant]
     Active Substance: ACETYLCYSTEINE
     Dosage: UNK 6-10ML DAILY UP TO 3 DAYS
  57. MUPIROCIN [Concomitant]
     Active Substance: MUPIROCIN
     Dosage: UNK, BID
  58. VAGICAINE [Concomitant]
     Active Substance: BENZOCAINE\RESORCINOL
     Indication: Vulvovaginal inflammation
     Dosage: UNK OTC
  59. IPRATROPIUM BROMIDE [Concomitant]
     Active Substance: IPRATROPIUM BROMIDE
     Dosage: UNK UNK, BID (GIVE 2 SPRAYS TO EACH NOSTRIL)
  60. IBUPROFEN [Concomitant]
     Active Substance: IBUPROFEN
     Indication: Pain
     Dosage: UNK (1-3 TABLETS Q 4-6 HRS PRN)
  61. IBUPROFEN [Concomitant]
     Active Substance: IBUPROFEN
     Indication: Pyrexia
  62. VALTOCO [Concomitant]
     Active Substance: DIAZEPAM
     Indication: Seizure
     Dosage: UNK (EACH NOSTRIL PRN FOR SEIZURE REPEAT X 1.)
  63. HYDROCODONE BITARTRATE AND ACETAMINOPHEN [Concomitant]
     Active Substance: ACETAMINOPHEN\HYDROCODONE BITARTRATE
     Indication: Pain
     Dosage: UNK (7.5/325MG/15ML 10ML Q 4 HOURS)
  64. CYSTEX PLUS [Concomitant]
     Active Substance: METHENAMINE\SODIUM SALICYLATE
     Indication: Dysuria
     Dosage: UNK UNK, TID
  65. NYSTATIN [Concomitant]
     Active Substance: NYSTATIN
     Dosage: UNK (10ML SWAB MOUTH QID AND PRN)
  66. BLEPHAMIDE [PREDNISOLONE ACETATE;SULFACETAMIDE SODIUM] [Concomitant]
     Indication: Ear infection
     Dosage: UNK (10/ 0.2%3 DROPS IN EAR BID FOR 14 DAYS PRN)
  67. ORAPRED [PREDNISONE] [Concomitant]
     Indication: Respiratory disorder
     Dosage: UNK (15MG/5ML 10ML Q 4 HOURS VIA NEBULIZER)
  68. PREDNISONE [Concomitant]
     Active Substance: PREDNISONE
     Dosage: UNK (10MG GIVE 10 TO 20MG UP TO 3-4 TIES A DAY AS PER DOCTOR)
  69. REGLAN [Concomitant]
     Active Substance: METOCLOPRAMIDE HYDROCHLORIDE
     Indication: Abdominal distension
     Dosage: UNK (Q 8 HRS FOR PRN NOT MORE THAN 10 DAYS )
  70. REGLAN [Concomitant]
     Active Substance: METOCLOPRAMIDE HYDROCHLORIDE
     Indication: Gastrointestinal motility disorder
  71. BENTYL [Concomitant]
     Active Substance: DICYCLOMINE HYDROCHLORIDE
     Indication: Abdominal pain
     Dosage: UNK (20MG ONE OR 10ML Q 6 HRS PRN)
  72. SUMATRIPTAN [Concomitant]
     Active Substance: SUMATRIPTAN
     Indication: Migraine
     Dosage: UNK (MAY REPEAT XL AFTER 2 HOURS)
  73. NYSTATIN [Concomitant]
     Active Substance: NYSTATIN
     Indication: Fungal infection
     Dosage: UNK, BID (OR POWDER UP TO BID)
  74. TRIAMCINOLONE ACETONIDE [Concomitant]
     Active Substance: TRIAMCINOLONE ACETONIDE
     Indication: Skin irritation
     Dosage: UNK, QD
  75. TRIAMCINOLONE ACETONIDE [Concomitant]
     Active Substance: TRIAMCINOLONE ACETONIDE
     Indication: Rash
  76. TRULANCE [Concomitant]
     Active Substance: PLECANATIDE
  77. FLUTICASONE [Concomitant]
     Active Substance: FLUTICASONE
     Indication: Nasal congestion
     Dosage: UNK (1-2 SPRAYS TO EACH NOSTRIL BID)
  78. FLUOCINOLONE [Concomitant]
     Active Substance: FLUOCINOLONE
     Dosage: SCALP OIL APPLY OIL TO SCALP AT NIGHT AND LEAVE OVERNIGHT AND RINSE IN AM

REACTIONS (9)
  - Pneumonia [Not Recovered/Not Resolved]
  - Clostridium difficile infection [Not Recovered/Not Resolved]
  - Bronchitis [Recovered/Resolved]
  - Pneumonia aspiration [Recovered/Resolved]
  - Urinary tract infection [Recovered/Resolved]
  - Gastrooesophageal reflux disease [Not Recovered/Not Resolved]
  - Acute respiratory distress syndrome [Recovered/Resolved]
  - Urinary tract infection [Not Recovered/Not Resolved]
  - Diarrhoea [Not Recovered/Not Resolved]

NARRATIVE: CASE EVENT DATE: 20250611
